FAERS Safety Report 22745159 (Version 2)
Quarter: 2024Q1

REPORT INFORMATION
  Report Type: Spontaneous
  Country: MX (occurrence: MX)
  Receive Date: 20230725
  Receipt Date: 20240103
  Transmission Date: 20240409
  Serious: No
  Sender: FDA-Public Use
  Company Number: MX-NOVOPROD-1091717

PATIENT
  Age: 63 Year
  Sex: Female
  Weight: 72 kg

DRUGS (9)
  1. RYBELSUS [Suspect]
     Active Substance: SEMAGLUTIDE
     Indication: Type 2 diabetes mellitus
     Dosage: 3 MG, QD
     Route: 048
     Dates: start: 20230520
  2. NORUTEC [Concomitant]
     Indication: Colitis
     Dosage: 20 MG, QD
     Route: 048
     Dates: start: 20230529
  3. NORUTEC [Concomitant]
     Indication: Gallbladder disorder
  4. RIFAXIMIN [Concomitant]
     Active Substance: RIFAXIMIN
     Indication: Colitis
  5. RIFAXIMIN [Concomitant]
     Active Substance: RIFAXIMIN
     Indication: Gallbladder disorder
     Dosage: 550 MG, BID
     Route: 048
     Dates: start: 20230529
  6. LUNARIUM [Concomitant]
     Indication: Colitis
     Dosage: TWO CAPSULES
     Route: 048
     Dates: start: 20230529
  7. LUNARIUM [Concomitant]
     Indication: Gallbladder disorder
  8. PROBIOLOG IBS [Concomitant]
     Indication: Gallbladder disorder
  9. PROBIOLOG IBS [Concomitant]
     Indication: Colitis
     Dosage: ONE ENVELOPE ON AN EMPTY STOMACH. ORALLY
     Dates: start: 20230529

REACTIONS (2)
  - Porcelain gallbladder [Recovered/Resolved]
  - Cholelithiasis [Recovered/Resolved]
